FAERS Safety Report 9697701 (Version 1)
Quarter: 2013Q4

REPORT INFORMATION
  Report Type: Spontaneous
  Country: US (occurrence: US)
  Receive Date: 20131120
  Receipt Date: 20131120
  Transmission Date: 20140711
  Serious: No
  Sender: FDA-Public Use
  Company Number: US-PFIZER INC-2013330337

PATIENT
  Sex: Female

DRUGS (5)
  1. CARBOPLATIN [Suspect]
     Indication: OVARIAN CANCER METASTATIC
     Dosage: UNK
  2. AVASTIN [Suspect]
     Indication: OVARIAN CANCER METASTATIC
     Dosage: UNK
  3. TAXOL [Suspect]
     Indication: OVARIAN CANCER METASTATIC
     Dosage: UNK
  4. DOXEPIN HYDROCHLORIDE [Suspect]
     Indication: OVARIAN CANCER METASTATIC
     Dosage: UNK
  5. GEMZAR [Suspect]
     Indication: OVARIAN CANCER METASTATIC
     Dosage: UNK

REACTIONS (2)
  - Disease progression [Unknown]
  - Ovarian cancer metastatic [Unknown]
